FAERS Safety Report 8528036 (Version 2)
Quarter: 2014Q4

REPORT INFORMATION
  Report Type: Spontaneous
  Country: IT (occurrence: IT)
  Receive Date: 20120424
  Receipt Date: 20141218
  Transmission Date: 20150529
  Serious: No
  Sender: FDA-Public Use
  Company Number: IT-PFIZER INC-2012096219

PATIENT
  Age: 68 Year
  Sex: Female

DRUGS (3)
  1. CYTARABINE. [Suspect]
     Active Substance: CYTARABINE
     Indication: CENTRAL NERVOUS SYSTEM LYMPHOMA
     Dosage: 50 MG, CYCLIC ATLEAST 14 DAYS APART AND ATLEAST 7 DAYS FROM HD-MTX, UPTO 6 DAYS
     Route: 037
  2. METHOTREXATE [Suspect]
     Active Substance: METHOTREXATE
     Indication: CENTRAL NERVOUS SYSTEM LYMPHOMA
     Dosage: 3G/MS D 1, 10, 20, CYCLIC UPTO 5 CYCLES
     Route: 042
  3. TEMOZOLOMIDE. [Suspect]
     Active Substance: TEMOZOLOMIDE
     Indication: CENTRAL NERVOUS SYSTEM LYMPHOMA
     Dosage: 100 MG/MS D 1-5, CYCLIC, UPTO 5 CYCLES

REACTIONS (2)
  - No adverse event [Recovering/Resolving]
  - No adverse event [Recovered/Resolved]
